FAERS Safety Report 25208431 (Version 4)
Quarter: 2025Q2

REPORT INFORMATION
  Report Type: Spontaneous
  Country: US (occurrence: US)
  Receive Date: 20250417
  Receipt Date: 20250623
  Transmission Date: 20250717
  Serious: Yes (Other)
  Sender: BRISTOL-MYERS SQUIBB COMPANY
  Company Number: US-BRISTOL-MYERS SQUIBB COMPANY-2025-049665

PATIENT
  Age: 62 Year
  Sex: Female

DRUGS (3)
  1. REVLIMID [Suspect]
     Active Substance: LENALIDOMIDE
     Indication: Plasma cell myeloma
     Dosage: TAKE 1 CAPSULE BY MOUTH DAILY FOR 21 DAYS FOLLOWED BY 7 DAYS OFF DO NOT START BEFORE 05-FEB-2025
     Route: 048
  2. REVLIMID [Suspect]
     Active Substance: LENALIDOMIDE
     Dosage: TAKE 1 CAPSULE BY MOUTH EVERY DAY FOR 21 DAYS FOLLOWED BY 7 DAYS OFF
     Route: 048
  3. REVLIMID [Suspect]
     Active Substance: LENALIDOMIDE
     Dosage: TAKE 1 CAPSULE BY MOUTH EVERY DAY FOR 21 DAYS FOLLOWED BY 7 DAYS OFF
     Route: 048
     Dates: start: 20250501

REACTIONS (9)
  - Pain [Recovering/Resolving]
  - Fatigue [Recovering/Resolving]
  - Diarrhoea [Recovering/Resolving]
  - Plasma cell myeloma recurrent [Unknown]
  - Constipation [Recovering/Resolving]
  - Taste disorder [Not Recovered/Not Resolved]
  - Product distribution issue [Unknown]
  - Therapy interrupted [Unknown]
  - Sinusitis [Recovered/Resolved]
